FAERS Safety Report 22590516 (Version 1)
Quarter: 2023Q2

REPORT INFORMATION
  Report Type: Report from Study
  Country: CA (occurrence: CA)
  Receive Date: 20230612
  Receipt Date: 20230612
  Transmission Date: 20230721
  Serious: Yes (Hospitalization)
  Sender: FDA-Public Use
  Company Number: CA-MYLANLABS-2023M1046571

PATIENT
  Sex: Male
  Weight: 64.2 kg

DRUGS (1)
  1. OGIVRI [Suspect]
     Active Substance: TRASTUZUMAB-DKST
     Indication: Oesophageal adenocarcinoma
     Dosage: UNK
     Route: 042
     Dates: start: 20230331, end: 20230414

REACTIONS (3)
  - Malaise [Unknown]
  - Infection [Unknown]
  - Treatment delayed [Unknown]
